FAERS Safety Report 17010334 (Version 2)
Quarter: 2019Q4

REPORT INFORMATION
  Report Type: Spontaneous
  Country: US (occurrence: US)
  Receive Date: 20191108
  Receipt Date: 20191231
  Transmission Date: 20200122
  Serious: Yes (Hospitalization)
  Sender: FDA-Public Use
  Company Number: US-ROCHE-2456472

PATIENT
  Age: 15 Year
  Sex: Male

DRUGS (4)
  1. NUTROPIN AQ [Suspect]
     Active Substance: SOMATROPIN
     Indication: CHRONIC KIDNEY DISEASE
     Dosage: 06 DAYS PER WWEEK?AQ 20 MG/2ML
     Route: 058
     Dates: start: 20150925
  2. NUTROPIN AQ [Suspect]
     Active Substance: SOMATROPIN
     Indication: CHRONIC KIDNEY DISEASE
  3. CANDESARTAN. [Suspect]
     Active Substance: CANDESARTAN
     Indication: PRODUCT USED FOR UNKNOWN INDICATION
     Route: 065
     Dates: start: 20160721
  4. TOPROL XL [Concomitant]
     Active Substance: METOPROLOL SUCCINATE
     Route: 065
     Dates: start: 20160624

REACTIONS (2)
  - Seizure [Unknown]
  - Migraine [Unknown]

NARRATIVE: CASE EVENT DATE: 20191023
